FAERS Safety Report 10388745 (Version 1)
Quarter: 2014Q1

REPORT INFORMATION
  Report Type: Spontaneous
  Country: US (occurrence: None)
  Receive Date: 20140306
  Receipt Date: 20140306
  Transmission Date: 20141002
  Serious: Yes (Other)
  Sender: FDA-Public Use
  Company Number: 163-21880-13123803

PATIENT
  Age: 65 Year
  Sex: Male

DRUGS (4)
  1. REVLIMID (LENALIDOMIDE) (25 MILLIGRAM, CAPSULES) [Suspect]
     Route: 048
     Dates: start: 20130829
  2. MORPHINE SULFATE (MORPHINE SULFATE) INJECTION [Concomitant]
  3. OXYCONTIN (OXYCODONE HYDROCHLORIDE) [Concomitant]
  4. ONDANSETRON (ONDANSETRON) (TABLETS) [Concomitant]

REACTIONS (2)
  - Spinal fracture [None]
  - Pneumonia [None]
